FAERS Safety Report 19071524 (Version 1)
Quarter: 2021Q1

REPORT INFORMATION
  Report Type: Report from Study
  Country: None (occurrence: MX)
  Receive Date: 20210330
  Receipt Date: 20210330
  Transmission Date: 20210420
  Serious: Yes (Hospitalization)
  Sender: FDA-Public Use
  Company Number: MX-ABBVIE-21K-107-3833944-00

PATIENT
  Age: 59 Year
  Sex: Female

DRUGS (2)
  1. METICORTEN [Suspect]
     Active Substance: PREDNISONE
     Indication: ANKYLOSING SPONDYLITIS
     Route: 065
  2. HUMIRA [Suspect]
     Active Substance: ADALIMUMAB
     Indication: ANKYLOSING SPONDYLITIS
     Route: 058
     Dates: start: 20110303

REACTIONS (6)
  - Gastroenteritis [Recovering/Resolving]
  - Electrolyte imbalance [Recovering/Resolving]
  - Chronic kidney disease [Recovering/Resolving]
  - Off label use [Unknown]
  - Gastroenteritis [Recovered/Resolved]
  - Gastroenteritis [Recovered/Resolved]

NARRATIVE: CASE EVENT DATE: 201312
